FAERS Safety Report 22216767 (Version 1)
Quarter: 2023Q2

REPORT INFORMATION
  Report Type: Spontaneous
  Country: IT (occurrence: IT)
  Receive Date: 20230417
  Receipt Date: 20230417
  Transmission Date: 20230721
  Serious: Yes (Other)
  Sender: FDA-Public Use
  Company Number: IT-MINISAL02-917069

PATIENT
  Age: 80 Year
  Sex: Female
  Weight: 69 kg

DRUGS (1)
  1. CLOPIDOGREL BISULFATE [Suspect]
     Active Substance: CLOPIDOGREL BISULFATE
     Indication: Cerebrovascular disorder
     Dosage: 1 DOSAGE FORM, ONCE A DAY 1 DOSAGE FORM,(1 AL DI)
     Route: 048
     Dates: start: 20230302, end: 20230303

REACTIONS (6)
  - Ataxia [Unknown]
  - Loss of consciousness [Unknown]
  - Vomiting [Unknown]
  - Abdominal pain upper [Unknown]
  - Vertigo [Unknown]
  - Nausea [Unknown]

NARRATIVE: CASE EVENT DATE: 20230302
